FAERS Safety Report 5359730-X (Version None)
Quarter: 2007Q2

REPORT INFORMATION
  Report Type: 
  Country: None (occurrence: None)
  Receive Date: 20070530
  Receipt Date: 20070316
  Transmission Date: 20071010
  Serious: No
  Sender: FDA-Public Use
  Company Number: 2007PV031889

PATIENT
  Age: 57 Year
  Sex: Female

DRUGS (2)
  1. BYETTA [Suspect]
     Indication: DIABETES MELLITUS NON-INSULIN-DEPENDENT
     Dosage: 10MCG;BID;SC
     Route: 058
     Dates: start: 20070101
  2. LANTUS [Concomitant]

REACTIONS (1)
  - BLOOD GLUCOSE INCREASED [None]
